FAERS Safety Report 5410967-0 (Version None)
Quarter: 2007Q3

REPORT INFORMATION
  Report Type: 
  Country: None (occurrence: None)
  Receive Date: 20070810
  Receipt Date: 20070607
  Transmission Date: 20080115
  Serious: No
  Sender: FDA-Public Use
  Company Number: A0654604A

PATIENT
  Age: 78 Year
  Sex: Female

DRUGS (4)
  1. ALTABAX [Suspect]
     Route: 061
     Dates: start: 20070606, end: 20070607
  2. SYNTHROID [Concomitant]
  3. AMOXICILLIN [Concomitant]
  4. METOPROLOL SUCCINATE [Concomitant]

REACTIONS (1)
  - PAIN [None]
